FAERS Safety Report 7400126-4 (Version None)
Quarter: 2011Q2

REPORT INFORMATION
  Report Type: 
  Country: None (occurrence: None)
  Receive Date: 20110407
  Receipt Date: 20100304
  Transmission Date: 20111010
  Serious: No
  Sender: FDA-Public Use
  Company Number: US-KINGPHARMUSA00001-K201000269

PATIENT
  Sex: Female
  Weight: 65.76 kg

DRUGS (2)
  1. SKELAXIN [Suspect]
     Indication: MUSCLE SPASMS
     Dosage: 800 MG, TID
     Route: 048
     Dates: start: 20100303, end: 20100303
  2. BENADRYL [Suspect]
     Indication: ALLERGIC SINUSITIS
     Dosage: 2 DF, SINGLE
     Dates: start: 20100303, end: 20100303

REACTIONS (7)
  - VERTIGO [None]
  - DIZZINESS [None]
  - BALANCE DISORDER [None]
  - ABASIA [None]
  - HYPOKINESIA [None]
  - NAUSEA [None]
  - VOMITING [None]
